FAERS Safety Report 5397628-1 (Version None)
Quarter: 2007Q3

REPORT INFORMATION
  Report Type: 
  Country: None (occurrence: None)
  Receive Date: 20070723
  Receipt Date: 20070723
  Transmission Date: 20080115
  Serious: Yes (Other)
  Sender: FDA-Public Use
  Company Number: None

PATIENT
  Age: 42 Year
  Sex: Male
  Weight: 70.3075 kg

DRUGS (1)
  1. TINDAMAX [Suspect]
     Indication: GASTRIC INFECTION
     Dosage: 2 GRMS ONCE DAILY PO
     Route: 048
     Dates: start: 20070718, end: 20070720

REACTIONS (2)
  - ARTHRALGIA [None]
  - JOINT SWELLING [None]
